FAERS Safety Report 5854638-5 (Version None)
Quarter: 2008Q3

REPORT INFORMATION
  Report Type: 
  Country: None (occurrence: None)
  Receive Date: 20080822
  Receipt Date: 20071106
  Transmission Date: 20090109
  Serious: No
  Sender: FDA-Public Use
  Company Number: US-ABBOTT-07P-163-0424220-00

PATIENT
  Sex: Female
  Weight: 63.106 kg

DRUGS (2)
  1. SYNTHROID [Suspect]
     Indication: HYPERTHYROIDISM
     Route: 048
     Dates: start: 20071022
  2. SYNTHROID [Suspect]
     Route: 048
     Dates: start: 20070701, end: 20071022

REACTIONS (3)
  - GENITAL BURNING SENSATION [None]
  - POLLAKIURIA [None]
  - PRURITUS [None]
